FAERS Safety Report 10973279 (Version 6)
Quarter: 2018Q3

REPORT INFORMATION
  Report Type: Spontaneous
  Country: KR (occurrence: KR)
  Receive Date: 20150401
  Receipt Date: 20180906
  Transmission Date: 20181010
  Serious: Yes (Other)
  Sender: FDA-Public Use
  Company Number: KR-009507513-1501KOR011424

PATIENT
  Age: 66 Year
  Sex: Male
  Weight: 58 kg

DRUGS (14)
  1. BRIDION [Suspect]
     Active Substance: SUGAMMADEX
     Indication: NEUROMUSCULAR BLOCKADE REVERSAL
     Dosage: 116 MG (2MG/KG), ONCE
     Route: 042
     Dates: start: 20150120
  2. EPHEDRINE HYDROCHLORIDE [Concomitant]
     Active Substance: EPHEDRINE HYDROCHLORIDE
     Indication: BLOOD PRESSURE MANAGEMENT
     Dosage: 10 MG, QD
     Route: 042
     Dates: start: 20150120
  3. ALOXI [Concomitant]
     Active Substance: PALONOSETRON HYDROCHLORIDE
     Indication: PROPHYLAXIS OF NAUSEA AND VOMITING
     Dosage: 75 MICROGRAM, QD
     Route: 042
     Dates: start: 20150120, end: 20150120
  4. DENOGAN [Concomitant]
     Active Substance: PROPACETAMOL HYDROCHLORIDE
     Indication: PROCEDURAL PAIN
     Dosage: 2 G, QD
     Route: 008
     Dates: start: 20150120, end: 20150120
  5. HALCION [Concomitant]
     Active Substance: TRIAZOLAM
     Indication: PROPHYLAXIS
     Dosage: 0.25 MG, QD
     Route: 048
     Dates: start: 20150120, end: 20150120
  6. XEROVA [Concomitant]
     Indication: PROPHYLAXIS
     Dosage: 1 TIMES, QD, ORAL CAVITY
     Route: 048
     Dates: start: 20150120, end: 20150120
  7. ROCURONIUM BROMIDE. [Suspect]
     Active Substance: ROCURONIUM BROMIDE
     Dosage: 125 MG, ONCE. TOTAL 125 MG  WAS ADMINISETERED FROM 09:05 UNTIL THE END OF THE SURGERY BY INFUSION
     Route: 041
     Dates: start: 20150120
  8. HEXAMEDIN [Concomitant]
     Indication: PROPHYLAXIS
     Dosage: 1 TIMES, QD, GARGLE
     Dates: start: 20150119, end: 20150119
  9. FENTANYL CITRATE. [Concomitant]
     Active Substance: FENTANYL CITRATE
     Indication: PAIN PROPHYLAXIS
     Dosage: 100 MICROGRAM, QD
     Route: 008
     Dates: start: 20150120, end: 20150120
  10. FENTANYL CITRATE. [Concomitant]
     Active Substance: FENTANYL CITRATE
     Dosage: 1.5 MG, QD INFUSION
     Route: 041
     Dates: start: 20150120, end: 20150124
  11. CEFAZOLIN [Concomitant]
     Active Substance: CEFAZOLIN
     Indication: INFECTION PROPHYLAXIS
     Dosage: 1 G, TID
     Route: 042
     Dates: start: 20150120, end: 20150120
  12. ROCURONIUM BROMIDE. [Suspect]
     Active Substance: ROCURONIUM BROMIDE
     Indication: MUSCLE RELAXANT THERAPY
     Dosage: 50 MG, ONCE
     Route: 042
     Dates: start: 20150120
  13. DENOGAN [Concomitant]
     Active Substance: PROPACETAMOL HYDROCHLORIDE
     Dosage: 10 G, QD
     Route: 041
     Dates: start: 20150120, end: 20150124
  14. NASEA [Concomitant]
     Active Substance: RAMOSETRON HYDROCHLORIDE
     Indication: PROPHYLAXIS OF NAUSEA AND VOMITING
     Dosage: 0.6 MG, QD
     Route: 041
     Dates: start: 20150120, end: 20150124

REACTIONS (4)
  - Abdominal distension [Recovered/Resolved]
  - Hypertensive crisis [Recovered/Resolved]
  - Pyrexia [Recovered/Resolved]
  - Chills [Recovered/Resolved]

NARRATIVE: CASE EVENT DATE: 20150120
